FAERS Safety Report 7560469-0 (Version None)
Quarter: 2011Q2

REPORT INFORMATION
  Report Type: 
  Country: None (occurrence: None)
  Receive Date: 20110621
  Receipt Date: 20110614
  Transmission Date: 20111010
  Serious: No
  Sender: FDA-Public Use
  Company Number: DE-JNJFOC-20110506478

PATIENT
  Age: 71 Year
  Sex: Female
  Weight: 80 kg

DRUGS (3)
  1. CITALOPRAM HYDROBROMIDE [Concomitant]
     Route: 065
  2. DURAGESIC-100 [Suspect]
     Indication: PAIN
     Dosage: 12.5 UG/HR + 25 UG/HR
     Route: 062
  3. LYRICA [Concomitant]
     Indication: POLYNEUROPATHY
     Route: 065

REACTIONS (5)
  - SOMNOLENCE [None]
  - PRODUCT ADHESION ISSUE [None]
  - DRUG EFFECT INCREASED [None]
  - WRONG TECHNIQUE IN DRUG USAGE PROCESS [None]
  - DISTURBANCE IN ATTENTION [None]
